FAERS Safety Report 13995355 (Version 1)
Quarter: 2017Q3

REPORT INFORMATION
  Report Type: Spontaneous
  Country: US (occurrence: US)
  Receive Date: 20170921
  Receipt Date: 20170921
  Transmission Date: 20171128
  Serious: Yes (Death)
  Sender: FDA-Public Use
  Company Number: US-ROCHE-1996601

PATIENT
  Sex: Male

DRUGS (4)
  1. ERIVEDGE [Suspect]
     Active Substance: VISMODEGIB
     Indication: BASAL CELL CARCINOMA
     Route: 048
     Dates: start: 201410
  2. PANCRELIPASE. [Concomitant]
     Active Substance: PANCRELIPASE
     Dosage: 5000UNIT
     Route: 065
  3. MORPHINE SULFATE. [Concomitant]
     Active Substance: MORPHINE SULFATE
     Route: 065
  4. ATROVENT [Concomitant]
     Active Substance: IPRATROPIUM BROMIDE
     Dosage: 18MCG/AC
     Route: 065

REACTIONS (1)
  - Death [Fatal]
